FAERS Safety Report 4922312-5 (Version None)
Quarter: 2006Q1

REPORT INFORMATION
  Report Type: 
  Country: None (occurrence: None)
  Receive Date: 20060224
  Receipt Date: 20050706
  Transmission Date: 20060701
  Serious: Yes (Hospitalization, Disabling)
  Sender: FDA-Public Use
  Company Number: US-MERCK-0507USA00613

PATIENT
  Age: 55 Year
  Sex: Male
  Weight: 86 kg

DRUGS (18)
  1. VIOXX [Suspect]
     Indication: ARTHRITIS
     Route: 048
     Dates: start: 19990101, end: 20041005
  2. VIOXX [Suspect]
     Indication: INTERVERTEBRAL DISC PROTRUSION
     Route: 048
     Dates: start: 19990101, end: 20041005
  3. TOPROL-XL [Concomitant]
     Route: 048
  4. ISMO [Concomitant]
     Route: 048
  5. LIPITOR [Concomitant]
     Route: 048
  6. PLAVIX [Concomitant]
     Route: 048
  7. NIACIN [Concomitant]
     Route: 048
  8. ASPIRIN [Concomitant]
     Route: 048
  9. NITROGLYCERIN [Concomitant]
     Route: 065
  10. PRILOSEC [Concomitant]
     Route: 048
  11. SYNTHROID [Concomitant]
     Route: 048
  12. ALBUTEROL [Concomitant]
     Route: 065
  13. XANAX [Concomitant]
     Route: 065
  14. HYTRIN [Concomitant]
     Route: 065
  15. FLONASE [Concomitant]
     Route: 065
  16. SINGULAIR [Concomitant]
     Route: 065
  17. HYDROCODONE HYDROCHLORIDE [Concomitant]
     Route: 065
  18. TYLENOL (CAPLET) [Concomitant]
     Route: 065

REACTIONS (20)
  - ACUTE MYOCARDIAL INFARCTION [None]
  - ANHEDONIA [None]
  - ANXIETY [None]
  - ASTHMA [None]
  - CARDIOMEGALY [None]
  - CHEST PAIN [None]
  - CORONARY ARTERY DISEASE [None]
  - COUGH [None]
  - DEPRESSION [None]
  - FATIGUE [None]
  - FEAR OF DISEASE [None]
  - FEELING ABNORMAL [None]
  - HEADACHE [None]
  - HYPERSENSITIVITY [None]
  - HYPOAESTHESIA [None]
  - MENTAL DISORDER [None]
  - MYOCARDIAL INFARCTION [None]
  - PAIN [None]
  - PLEURITIC PAIN [None]
  - STRESS [None]
